FAERS Safety Report 5753849-7 (Version None)
Quarter: 2008Q2

REPORT INFORMATION
  Report Type: 
  Country: None (occurrence: None)
  Receive Date: 20080530
  Receipt Date: 20070725
  Transmission Date: 20081010
  Serious: No
  Sender: FDA-Public Use
  Company Number: A0667391A

PATIENT
  Age: 56 Year
  Sex: Female
  Weight: 66 kg

DRUGS (5)
  1. FLOLAN [Suspect]
     Indication: PULMONARY HYPERTENSION
     Route: 065
     Dates: start: 20070101
  2. OXYCONTIN [Concomitant]
     Dosage: 20MG TWICE PER DAY
     Route: 048
  3. OXYCODONE HCL [Concomitant]
     Route: 048
  4. COUMADIN [Concomitant]
     Route: 048
  5. LASIX [Concomitant]
     Route: 048

REACTIONS (1)
  - RASH PRURITIC [None]
